FAERS Safety Report 5568418-1 (Version None)
Quarter: 2007Q4

REPORT INFORMATION
  Report Type: 
  Country: None (occurrence: None)
  Receive Date: 20071220
  Receipt Date: 20071212
  Transmission Date: 20080405
  Serious: Yes (Hospitalization)
  Sender: FDA-Public Use
  Company Number: PHBS2007JP17896

PATIENT
  Age: 81 Year
  Sex: Female

DRUGS (9)
  1. DIOVAN [Suspect]
     Indication: HYPERTENSION
     Dosage: 80 MG, QD
     Route: 048
     Dates: start: 20070907, end: 20071011
  2. TEGRETOL [Suspect]
     Indication: HYPOAESTHESIA
     Dosage: 200 MG/DAY
     Route: 048
     Dates: start: 20070904, end: 20071010
  3. LOXOPROFEN SODIUM [Suspect]
     Indication: PAIN
     Dosage: 60 MG, TID
     Route: 048
     Dates: start: 20070824, end: 20071005
  4. DEPAS [Suspect]
     Indication: PAIN
     Dosage: 0.5 MG, QD
     Route: 048
     Dates: start: 20070824, end: 20071011
  5. MEXITIL [Suspect]
     Indication: PAIN
     Dosage: 100 MG, TID
     Route: 048
     Dates: start: 20070824, end: 20071011
  6. CODEINE SUL TAB [Suspect]
     Indication: PAIN
     Dosage: 20 MG, QD
     Route: 048
     Dates: start: 20070910, end: 20071010
  7. ADALAT [Concomitant]
     Indication: HYPERTENSION
     Dosage: 40 MG, UNK
     Route: 048
     Dates: start: 20070828
  8. OMEPRAL [Concomitant]
     Indication: REFLUX OESOPHAGITIS
     Dosage: 20 MG/DAY
     Route: 048
     Dates: start: 20070828
  9. MAGNESIUM OXIDE [Concomitant]
     Dates: end: 20071010

REACTIONS (18)
  - BLOOD CREATININE INCREASED [None]
  - BLOOD GLUCOSE INCREASED [None]
  - BLOOD IMMUNOGLOBULIN E INCREASED [None]
  - BLOOD UREA INCREASED [None]
  - BODY TEMPERATURE INCREASED [None]
  - DRUG RASH WITH EOSINOPHILIA AND SYSTEMIC SYMPTOMS [None]
  - EOSINOPHIL COUNT INCREASED [None]
  - ERYTHEMA [None]
  - HYPOAESTHESIA [None]
  - PAIN [None]
  - PARAESTHESIA ORAL [None]
  - RASH [None]
  - SKIN EROSION [None]
  - SKIN EXFOLIATION [None]
  - STEVENS-JOHNSON SYNDROME [None]
  - SWELLING [None]
  - URTICARIA [None]
  - VISION BLURRED [None]
